FAERS Safety Report 19752912 (Version 8)
Quarter: 2023Q4

REPORT INFORMATION
  Report Type: Spontaneous
  Country: US (occurrence: US)
  Receive Date: 20210826
  Receipt Date: 20231128
  Transmission Date: 20240110
  Serious: Yes (Other)
  Sender: FDA-Public Use
  Company Number: US-PFIZER INC-202101064638

PATIENT
  Age: 76 Year
  Sex: Male
  Weight: 86.18 kg

DRUGS (2)
  1. VYNDAMAX [Suspect]
     Active Substance: TAFAMIDIS
     Dosage: 61 MG, 1X/DAY
     Route: 048
  2. VYNDAMAX [Suspect]
     Active Substance: TAFAMIDIS
     Dosage: UNK

REACTIONS (6)
  - Cerebrovascular accident [Unknown]
  - Aphasia [Unknown]
  - Speech disorder [Unknown]
  - Hypoacusis [Unknown]
  - Disease recurrence [Unknown]
  - Product dose omission in error [Unknown]
